FAERS Safety Report 8578784-0 (Version None)
Quarter: 2012Q3

REPORT INFORMATION
  Report Type: 
  Country: None (occurrence: None)
  Receive Date: 20120808
  Receipt Date: 20120801
  Transmission Date: 20120928
  Serious: Yes (Other)
  Sender: FDA-Public Use
  Company Number: US-ABBOTT-12P-163-0929560-00

PATIENT
  Sex: Female
  Weight: 92.162 kg

DRUGS (12)
  1. HUMIRA [Suspect]
     Indication: CROHN'S DISEASE
     Dates: start: 20120330, end: 20120330
  2. HUMIRA [Suspect]
     Dates: start: 20120413, end: 20120413
  3. HUMIRA [Suspect]
  4. TRAZODONE HYDROCHLORIDE [Concomitant]
     Indication: FIBROMYALGIA
  5. ENTOCORT EC [Concomitant]
     Indication: CROHN'S DISEASE
  6. HYDROCODONE BITARTRATE [Concomitant]
     Indication: CROHN'S DISEASE
  7. GABAPENTIN [Concomitant]
     Indication: CROHN'S DISEASE
  8. ASACOL [Concomitant]
     Indication: CROHN'S DISEASE
     Dosage: 500MG 2 TABLETS THREE TIMES A DAY
  9. GABAPENTIN [Concomitant]
     Indication: NERVE INJURY
  10. TRAZODONE HYDROCHLORIDE [Concomitant]
     Indication: CROHN'S DISEASE
     Dosage: AT BEDTIME
  11. FLEXERIL [Concomitant]
     Indication: MYALGIA
  12. FLEXERIL [Concomitant]
     Indication: MUSCLE SPASMS

REACTIONS (19)
  - MALAISE [None]
  - INJECTION SITE SWELLING [None]
  - UPPER RESPIRATORY TRACT INFECTION [None]
  - PROTEIN TOTAL DECREASED [None]
  - FISTULA [None]
  - BLOOD IRON DECREASED [None]
  - PAIN [None]
  - INTESTINAL OBSTRUCTION [None]
  - INJECTION SITE PAIN [None]
  - SINUSITIS [None]
  - COLITIS [None]
  - CONTUSION [None]
  - TENDERNESS [None]
  - PAIN IN EXTREMITY [None]
  - WHITE BLOOD CELL COUNT INCREASED [None]
  - EAR INFECTION [None]
  - INFLUENZA [None]
  - WEIGHT DECREASED [None]
  - DIARRHOEA [None]
